FAERS Safety Report 4405883-7 (Version None)
Quarter: 2004Q3

REPORT INFORMATION
  Report Type: 
  Country: None (occurrence: None)
  Receive Date: 20040723
  Receipt Date: 20040130
  Transmission Date: 20050211
  Serious: No
  Sender: FDA-Public Use
  Company Number: US-GLAXOSMITHKLINE-A0495967A

PATIENT
  Age: 47 Year
  Sex: Male

DRUGS (11)
  1. AVANDIA [Suspect]
     Dosage: 8MG PER DAY
     Route: 048
  2. VIOXX [Concomitant]
  3. INDERAL [Concomitant]
  4. NEXIUM [Concomitant]
  5. HYZAAR [Concomitant]
  6. ASPIRIN [Concomitant]
  7. CLARITIN [Concomitant]
  8. GLUCOPHAGE [Concomitant]
  9. TOPAMAX [Concomitant]
  10. DARVOCET [Concomitant]
  11. LIPITOR [Concomitant]

REACTIONS (1)
  - HYPERGLYCAEMIA [None]
